FAERS Safety Report 23338474 (Version 2)
Quarter: 2024Q1

REPORT INFORMATION
  Report Type: Spontaneous
  Country: GB (occurrence: GB)
  Receive Date: 20231226
  Receipt Date: 20240104
  Transmission Date: 20240410
  Serious: Yes (Other)
  Sender: FDA-Public Use
  Company Number: None

PATIENT
  Sex: Male

DRUGS (9)
  1. DOCETAXEL [Suspect]
     Active Substance: DOCETAXEL\DOCETAXEL ANHYDROUS
     Indication: Oesophageal carcinoma
     Dosage: EVERY TWO WEEKS, WAS DELIVERED FOUR TIMES
     Route: 065
     Dates: start: 20211118, end: 20220108
  2. FLUOROURACIL [Suspect]
     Active Substance: FLUOROURACIL
     Indication: Oesophageal carcinoma
     Dosage: EVERY TWO WEEKS FLOT THERAPY, 5FU WAS DELIVERED OVER THE FOLLOWING 24 HOURS
     Route: 065
     Dates: start: 20211118, end: 20220108
  3. LEUCOVORIN [Suspect]
     Active Substance: LEUCOVORIN\LEUCOVORIN CALCIUM
     Indication: Oesophageal carcinoma
     Dosage: EVERY TWO WEEKS THE PATIENT WENT TO RECEIVE FLOT, CHEMOTHERAPY WAS DELIVERED FOUR TIMES
     Route: 065
     Dates: start: 20211118, end: 20220108
  4. OXALIPLATIN [Suspect]
     Active Substance: OXALIPLATIN
     Dosage: NOT APPLICABLE (NOT HIKMA^S SUSPECT)
     Dates: start: 20211118, end: 20220108
  5. OXALIPLATIN [Suspect]
     Active Substance: OXALIPLATIN
     Indication: Oesophageal carcinoma
     Dosage: EVERY TWO WEEKS THE PATIENT WENT TO RECEIVE FLOT, CHEMOTHERAPY WAS DELIVERED FOUR TIMES
     Route: 065
     Dates: start: 20211118, end: 20220108
  6. DEXAMETHASONE [Concomitant]
     Active Substance: DEXAMETHASONE
     Indication: Product used for unknown indication
     Dosage: UNKNOWN
     Route: 065
  7. FILGRASTIM [Concomitant]
     Active Substance: FILGRASTIM
     Indication: Product used for unknown indication
     Dosage: UNK
     Route: 065
     Dates: end: 20220115
  8. FYBOGEL [Concomitant]
     Active Substance: HERBALS\PLANTAGO OVATA SEED
     Indication: Product used for unknown indication
     Dosage: TO SLOW DOWN DIGESTIVE SYSTEM
     Route: 065
  9. METOCLOPRAMIDE HYDROCHLORIDE [Concomitant]
     Active Substance: METOCLOPRAMIDE HYDROCHLORIDE
     Indication: Product used for unknown indication
     Dosage: UNKNOWN
     Route: 065

REACTIONS (2)
  - Hypoacusis [Unknown]
  - Feeling cold [Unknown]
